FAERS Safety Report 15739903 (Version 3)
Quarter: 2019Q4

REPORT INFORMATION
  Report Type: Spontaneous
  Country: US (occurrence: US)
  Receive Date: 20181219
  Receipt Date: 20191114
  Transmission Date: 20200122
  Serious: Yes (Other)
  Sender: FDA-Public Use
  Company Number: US-SA-2018SA341860

PATIENT
  Age: 44 Year
  Sex: Female
  Weight: 86.17 kg

DRUGS (4)
  1. TAXOTERE [Suspect]
     Active Substance: DOCETAXEL
     Dosage: UNK UNK, QW 35 A DAY
     Route: 042
     Dates: start: 20020101, end: 20020101
  2. VECTIBIX [Concomitant]
     Active Substance: PANITUMUMAB
     Indication: BREAST CANCER FEMALE
     Dosage: UNK UNK, UNK
     Route: 065
     Dates: start: 20000101, end: 20000101
  3. VECTIBIX [Concomitant]
     Active Substance: PANITUMUMAB
     Dosage: UNK
     Dates: start: 20020129, end: 20020129
  4. TAXOTERE [Suspect]
     Active Substance: DOCETAXEL
     Indication: BREAST CANCER FEMALE
     Dosage: UNK UNK, QW 35 A DAY
     Route: 042
     Dates: start: 20000101, end: 20000101

REACTIONS (3)
  - Psychological trauma [Unknown]
  - Alopecia [Not Recovered/Not Resolved]
  - Emotional distress [Unknown]

NARRATIVE: CASE EVENT DATE: 2000
